FAERS Safety Report 21516972 (Version 2)
Quarter: 2022Q4

REPORT INFORMATION
  Report Type: Report from Study
  Country: US (occurrence: US)
  Receive Date: 20221028
  Receipt Date: 20221031
  Transmission Date: 20230112
  Serious: Yes (Hospitalization)
  Sender: FDA-Public Use
  Company Number: US-ABBVIE-20K-163-3378584-00

PATIENT
  Age: 75 Year
  Sex: Male

DRUGS (2)
  1. VENCLEXTA [Suspect]
     Active Substance: VENETOCLAX
     Indication: Myelodysplastic syndrome
     Dosage: TAKE 4 TABLET(S) BY MOUTH EVERY MORNING WITH BREAKFAST ON DAYS 1-14 OF A 28 DAY CYCLE?FORM STRENG...
     Route: 048
     Dates: start: 20200413
  2. VENCLEXTA [Suspect]
     Active Substance: VENETOCLAX
     Indication: Myelodysplastic syndrome
     Route: 048

REACTIONS (6)
  - Constipation [Recovering/Resolving]
  - Pain [Recovered/Resolved]
  - Off label use [Unknown]
  - Pruritus [Unknown]
  - Back pain [Unknown]
  - Nausea [Unknown]

NARRATIVE: CASE EVENT DATE: 20200401
